FAERS Safety Report 15930540 (Version 2)
Quarter: 2020Q4

REPORT INFORMATION
  Report Type: Spontaneous
  Country: US (occurrence: US)
  Receive Date: 20190207
  Receipt Date: 20201130
  Transmission Date: 20210113
  Serious: Yes (Disabling)
  Sender: FDA-Public Use
  Company Number: US-TEVA-2019-US-1006095

PATIENT
  Age: 55 Year
  Sex: Female

DRUGS (4)
  1. GEMZAR [Concomitant]
     Active Substance: GEMCITABINE HYDROCHLORIDE
     Dosage: DOSAGE: UNKNOWN; NUMBER OF CYCLES: 04; EVERY THREE WEEKS
     Route: 065
     Dates: start: 20130604
  2. DOCETAXEL. [Suspect]
     Active Substance: DOCETAXEL
     Dosage: DOSAGE: 170MG; NUMBER OF CYCLES: 04; EVERY THREE WEEKS
     Route: 065
     Dates: start: 20130403, end: 20130604
  3. DACARBAZINE. [Concomitant]
     Active Substance: DACARBAZINE
     Dosage: DOSAGE: UNKNOWN; NUMBER OF CYCLES: 01; EVERY THREE WEEKS
     Route: 065
     Dates: start: 20130403, end: 20130604
  4. ADRIAMYCIN [Concomitant]
     Active Substance: DOXORUBICIN HYDROCHLORIDE
     Dosage: DOSAGE: UNKNOWN; NUMBER OF CYCLES: 02; EVERY THREE WEEKS
     Route: 065
     Dates: start: 20130403, end: 20130604

REACTIONS (3)
  - Hair colour changes [Not Recovered/Not Resolved]
  - Hair texture abnormal [Not Recovered/Not Resolved]
  - Alopecia areata [Not Recovered/Not Resolved]

NARRATIVE: CASE EVENT DATE: 2013
